FAERS Safety Report 7206244-8 (Version None)
Quarter: 2011Q1

REPORT INFORMATION
  Report Type: 
  Country: None (occurrence: None)
  Receive Date: 20110103
  Receipt Date: 20101221
  Transmission Date: 20110831
  Serious: Yes (Other)
  Sender: FDA-Public Use
  Company Number: US-ELI_LILLY_AND_COMPANY-US201012006195

PATIENT
  Age: 41 Year
  Sex: Male

DRUGS (7)
  1. LIPITOR [Concomitant]
  2. NEXIUM [Concomitant]
  3. FLUCONAZOLE [Concomitant]
  4. ASPIRIN [Concomitant]
  5. LEVAQUIN [Concomitant]
  6. CYCLOVIR [Concomitant]
  7. EFFIENT [Suspect]
     Dates: start: 20101216

REACTIONS (1)
  - NEUTROPENIA [None]
